FAERS Safety Report 20057539 (Version 1)
Quarter: 2021Q4

REPORT INFORMATION
  Report Type: Report from Study
  Country: US (occurrence: US)
  Receive Date: 20211111
  Receipt Date: 20211111
  Transmission Date: 20220303
  Serious: Yes (Life-Threatening)
  Sender: FDA-Public Use
  Company Number: US-ABBVIE-21K-163-4153183-00

PATIENT
  Age: 42 Year
  Sex: Female

DRUGS (1)
  1. RINVOQ [Suspect]
     Active Substance: UPADACITINIB
     Indication: Rheumatoid arthritis
     Dosage: EXTENDED RELEASE
     Route: 048
     Dates: start: 20210801, end: 20210804

REACTIONS (4)
  - Anaphylactic reaction [Recovered/Resolved]
  - Anxiety [Unknown]
  - Dysphagia [Unknown]
  - Throat tightness [Unknown]

NARRATIVE: CASE EVENT DATE: 20210804
